FAERS Safety Report 4535947-9 (Version None)
Quarter: 2004Q4

REPORT INFORMATION
  Report Type: 
  Country: None (occurrence: None)
  Receive Date: 20041222
  Receipt Date: 20041222
  Transmission Date: 20050328
  Serious: Yes (Other)
  Sender: FDA-Public Use
  Company Number: None

PATIENT
  Age: 77 Year
  Sex: Female
  Weight: 67.1324 kg

DRUGS (1)
  1. BUMEX [Suspect]
     Indication: CARDIAC FAILURE
     Dosage: 1 MG PO DAILY
     Route: 048

REACTIONS (3)
  - ASTHENIA [None]
  - NAUSEA [None]
  - PHARMACEUTICAL PRODUCT COMPLAINT [None]
